FAERS Safety Report 7909051-3 (Version None)
Quarter: 2011Q4

REPORT INFORMATION
  Report Type: 
  Country: None (occurrence: None)
  Receive Date: 20111108
  Receipt Date: 20111026
  Transmission Date: 20120403
  Serious: Yes (Hospitalization)
  Sender: FDA-Public Use
  Company Number: B0760648A

PATIENT
  Age: 43 Year
  Sex: Female

DRUGS (1)
  1. PROPRANOLOL HYDROCHLORIDE [Suspect]
     Indication: MIGRAINE

REACTIONS (13)
  - VOMITING [None]
  - CHEST DISCOMFORT [None]
  - PALPITATIONS [None]
  - BLOOD PRESSURE SYSTOLIC INCREASED [None]
  - PHAEOCHROMOCYTOMA [None]
  - CONGESTIVE CARDIOMYOPATHY [None]
  - DYSPNOEA [None]
  - HYPERHIDROSIS [None]
  - HYPOTENSION [None]
  - NAUSEA [None]
  - SINUS TACHYCARDIA [None]
  - HAEMODYNAMIC INSTABILITY [None]
  - LEFT VENTRICULAR FAILURE [None]
